FAERS Safety Report 6760589-4 (Version None)
Quarter: 2010Q2

REPORT INFORMATION
  Report Type: 
  Country: None (occurrence: None)
  Receive Date: 20100608
  Receipt Date: 20100527
  Transmission Date: 20101027
  Serious: Yes (Hospitalization)
  Sender: FDA-Public Use
  Company Number: DE-PFIZER INC-2010027683

PATIENT
  Age: 71 Year
  Sex: Male
  Weight: 76.5 kg

DRUGS (4)
  1. MYCOBUTIN [Suspect]
     Indication: CROHN'S DISEASE
     Dosage: 150 MG, 3X/DAY
     Route: 048
     Dates: start: 20091108, end: 20100131
  2. TAVANIC [Suspect]
     Indication: CROHN'S DISEASE
     Dosage: 500 MG, 1X/DAY
     Route: 048
     Dates: start: 20091108, end: 20100130
  3. CLARITHROMYCIN [Suspect]
     Indication: CROHN'S DISEASE
     Dosage: 500 MG, 2X/DAY
     Route: 048
     Dates: start: 20091108, end: 20100130
  4. CLAVERSAL ^MERCKLE^ [Suspect]
     Indication: CROHN'S DISEASE
     Dosage: 1.5 G, 1X/DAY
     Route: 048
     Dates: start: 20030101

REACTIONS (2)
  - JAUNDICE [None]
  - TRANSAMINASES INCREASED [None]
